FAERS Safety Report 7074102-8 (Version None)
Quarter: 2010Q4

REPORT INFORMATION
  Report Type: 
  Country: None (occurrence: None)
  Receive Date: 20101029
  Receipt Date: 20101018
  Transmission Date: 20110411
  Serious: Yes (Hospitalization)
  Sender: FDA-Public Use
  Company Number: PHHY2010DE46719

PATIENT
  Sex: Female

DRUGS (3)
  1. MERIGEST [Suspect]
     Indication: HORMONE REPLACEMENT THERAPY
     Dosage: 2 MG/0.7 MG ONCE DAILY
     Route: 048
  2. MERIGEST [Suspect]
     Dosage: 2 MG/0.7 MG, 1 TABLET EVERY OTHER DAY
     Route: 048
     Dates: start: 20100101, end: 20100601
  3. MERIGEST [Suspect]
     Dosage: UNK
     Route: 048
     Dates: start: 20100804, end: 20101001

REACTIONS (8)
  - BREAST ENLARGEMENT [None]
  - CARDIAC DISORDER [None]
  - FLUID RETENTION [None]
  - HOT FLUSH [None]
  - MEDICAL DEVICE REMOVAL [None]
  - MENOPAUSAL SYMPTOMS [None]
  - STRESS [None]
  - TRANSPLANT REJECTION [None]
